FAERS Safety Report 9929185 (Version 1)
Quarter: 2014Q1

REPORT INFORMATION
  Report Type: Report from Study
  Country: US (occurrence: US)
  Receive Date: 20140227
  Receipt Date: 20140227
  Transmission Date: 20141002
  Serious: Yes (Other)
  Sender: FDA-Public Use
  Company Number: US-ROCHE-1318546

PATIENT
  Age: 65 Year
  Sex: Female
  Weight: 49.76 kg

DRUGS (30)
  1. AVASTIN [Suspect]
     Indication: MALIGNANT NEOPLASM OF CHOROID
     Route: 042
     Dates: start: 20100926
  2. AVASTIN [Suspect]
     Indication: HEPATIC CANCER
     Route: 042
     Dates: start: 20101004
  3. AVASTIN [Suspect]
     Dosage: 03/MAY/2011, 17/MAY/2011, 16/JUN/2011, 28/JUN/2011, 26/JUL/2011, 30/AUG/2011, 13/SEP/2011, 04/OCT/20
     Route: 042
     Dates: start: 20110412
  4. AVASTIN [Suspect]
     Dosage: 28/DEC/2011, 11/JAN/2012, 24/JAN/2012, 07/FEB/2012, 21/FEB/2012, 07/MAR/2012, 20/MAR/2012, 04/APR/20
     Route: 042
  5. KYTRIL [Suspect]
     Indication: MALIGNANT NEOPLASM OF CHOROID
     Route: 042
     Dates: start: 20110617
  6. KYTRIL [Suspect]
     Indication: HEPATIC CANCER
  7. TAXOL [Concomitant]
     Route: 042
     Dates: start: 20100926
  8. DEXAMETHASONE SODIUM PHOSPHATE [Concomitant]
     Route: 042
  9. DIPHENHYDRAMINE HCL [Concomitant]
     Route: 042
  10. RANITIDINE HCL [Concomitant]
     Route: 042
  11. PALONOSETRON HYDROCHLORIDE [Concomitant]
     Route: 026
     Dates: end: 20110614
  12. VENLAFAXINE HCL [Concomitant]
     Route: 048
  13. BMX MOUTH SOLUTION (BENADRYL, MAALOX, LIDOCAINE) [Concomitant]
     Dosage: EVERY 3-4 HOURS PRN
     Route: 048
  14. ZOFRAN [Concomitant]
     Indication: NAUSEA
     Dosage: PRN
     Route: 048
  15. ZOFRAN [Concomitant]
     Indication: VOMITING
  16. EFFEXOR XR [Concomitant]
     Route: 048
  17. METOPROLOL SUCCINATE [Concomitant]
     Route: 048
  18. IMITREX [Concomitant]
     Dosage: AS DIRECTED
     Route: 048
  19. BONIVA [Concomitant]
     Route: 048
  20. TRAZODONE HCL [Concomitant]
     Route: 048
  21. FIORICET [Concomitant]
     Indication: PAIN
     Dosage: PRN
     Route: 048
  22. EXCEDRIN (UNITED STATES) [Concomitant]
  23. PRED FORTE [Concomitant]
     Dosage: 1 DROP OU Q4H
     Route: 047
  24. ACYCLOVIR [Concomitant]
     Route: 048
  25. ACYCLOVIR [Concomitant]
     Route: 061
     Dates: end: 20120221
  26. CLARITIN [Concomitant]
     Route: 048
  27. MILK THISTLE [Concomitant]
     Dosage: 2 CAPSULES
     Route: 048
  28. BABY ASPIRIN [Concomitant]
     Route: 065
  29. BABY ASPIRIN [Concomitant]
     Dosage: PATIENT INCREASED WITHOUT HCP INSTRUCTION
     Route: 065
     Dates: start: 20111228, end: 20120221
  30. EFFEXOR XR [Concomitant]
     Route: 048

REACTIONS (21)
  - Pancytopenia [Unknown]
  - Eye irritation [Unknown]
  - Headache [Unknown]
  - Fatigue [Unknown]
  - Gastrointestinal toxicity [Unknown]
  - Blood pressure increased [Unknown]
  - Neutropenia [Unknown]
  - Anaemia [Unknown]
  - Thrombocytopenia [Unknown]
  - Proteinuria [Unknown]
  - Neuropathy peripheral [Unknown]
  - Balance disorder [Unknown]
  - Lacrimation increased [Unknown]
  - Epistaxis [Unknown]
  - Eye pain [Unknown]
  - Sinus congestion [Unknown]
  - Toxicity to various agents [Unknown]
  - Pupillary deformity [Unknown]
  - Mydriasis [Unknown]
  - Eye movement disorder [Unknown]
  - Off label use [Unknown]
